FAERS Safety Report 10440513 (Version 3)
Quarter: 2014Q4

REPORT INFORMATION
  Report Type: Spontaneous
  Country: AU (occurrence: AU)
  Receive Date: 20140909
  Receipt Date: 20141027
  Transmission Date: 20150528
  Serious: Yes (Hospitalization)
  Sender: FDA-Public Use
  Company Number: AU-BRISTOL-MYERS SQUIBB COMPANY-21354162

PATIENT
  Age: 60 Year
  Sex: Female
  Weight: 106 kg

DRUGS (4)
  1. FORXIGA [Suspect]
     Active Substance: DAPAGLIFLOZIN
     Indication: GLYCOSYLATED HAEMOGLOBIN INCREASED
     Dosage: 1DF:ONE TABLET DAILY
     Route: 048
     Dates: start: 20140711
  2. SOMAC [Concomitant]
     Active Substance: PANTOPRAZOLE SODIUM
  3. METFORMIN [Concomitant]
     Active Substance: METFORMIN HYDROCHLORIDE
  4. OSTELIN [Concomitant]
     Active Substance: ERGOCALCIFEROL

REACTIONS (2)
  - Urosepsis [Recovered/Resolved]
  - Pyelonephritis [Unknown]
